FAERS Safety Report 7647804-X (Version None)
Quarter: 2011Q3

REPORT INFORMATION
  Report Type: 
  Country: None (occurrence: None)
  Receive Date: 20110801
  Receipt Date: 20110725
  Transmission Date: 20111222
  Serious: Yes (Other)
  Sender: FDA-Public Use
  Company Number: US-MERCK-1103USA03957

PATIENT
  Age: 72 Year
  Sex: Female
  Weight: 73 kg

DRUGS (2)
  1. FOSAMAX [Suspect]
     Indication: OSTEOPENIA
     Route: 048
     Dates: start: 20030601, end: 20061101
  2. BONIVA [Suspect]
     Indication: OSTEOPENIA
     Route: 048
     Dates: start: 20060101, end: 20090101

REACTIONS (39)
  - GALLBLADDER DISORDER [None]
  - VERTIGO POSITIONAL [None]
  - DYSPHAGIA [None]
  - SINUSITIS [None]
  - CHEST PAIN [None]
  - BALANCE DISORDER [None]
  - HEADACHE [None]
  - ANAL FISTULA [None]
  - ORAL TORUS [None]
  - PALATAL DISORDER [None]
  - MYOSITIS [None]
  - COAGULOPATHY [None]
  - OSTEONECROSIS OF JAW [None]
  - CATARACT [None]
  - JOINT SWELLING [None]
  - INSOMNIA [None]
  - HYPERCHOLESTEROLAEMIA [None]
  - TOOTH ABSCESS [None]
  - MICTURITION URGENCY [None]
  - CERUMEN IMPACTION [None]
  - GLAUCOMA [None]
  - MARROW HYPERPLASIA [None]
  - STRESS URINARY INCONTINENCE [None]
  - MUSCLE SPASMS [None]
  - BACK PAIN [None]
  - SYNOVIAL CYST [None]
  - LOW TURNOVER OSTEOPATHY [None]
  - IRRITABLE BOWEL SYNDROME [None]
  - ARTHRALGIA [None]
  - DENTAL FISTULA [None]
  - EXOSTOSIS [None]
  - ARTHROPATHY [None]
  - DEAFNESS NEUROSENSORY [None]
  - OSTEOMYELITIS [None]
  - INCREASED TENDENCY TO BRUISE [None]
  - DENTAL CARIES [None]
  - DIZZINESS [None]
  - MENISCUS LESION [None]
  - EYE PAIN [None]
